FAERS Safety Report 21392044 (Version 1)
Quarter: 2022Q3

REPORT INFORMATION
  Report Type: Spontaneous
  Country: US (occurrence: US)
  Receive Date: 20220929
  Receipt Date: 20220929
  Transmission Date: 20221027
  Serious: No
  Sender: FDA-Public Use
  Company Number: US-AMGEN-USASP2022166671

PATIENT
  Sex: Female

DRUGS (1)
  1. REPATHA [Suspect]
     Active Substance: EVOLOCUMAB
     Indication: Product used for unknown indication
     Dosage: 140 MILLIGRAM, Q2WK
     Route: 058

REACTIONS (6)
  - Tenderness [Recovered/Resolved]
  - Aphonia [Unknown]
  - Blood glucose fluctuation [Unknown]
  - Anorectal disorder [Recovered/Resolved]
  - Rhinorrhoea [Unknown]
  - Diarrhoea [Recovered/Resolved]
